FAERS Safety Report 25118033 (Version 1)
Quarter: 2025Q1

REPORT INFORMATION
  Report Type: Spontaneous
  Country: US (occurrence: None)
  Receive Date: 20250324
  Receipt Date: 20250324
  Transmission Date: 20250409
  Serious: Yes (Hospitalization)
  Sender: FDA-CTU
  Company Number: None

PATIENT
  Age: 51 Year
  Sex: Male
  Weight: 78.8 kg

DRUGS (1)
  1. CLOZAPINE [Suspect]
     Active Substance: CLOZAPINE
     Indication: Bipolar II disorder
     Dates: start: 20241118, end: 20241210

REACTIONS (8)
  - Depression [None]
  - Suicidal ideation [None]
  - Tachycardia [None]
  - Myocarditis [None]
  - Left ventricular hypertrophy [None]
  - Troponin increased [None]
  - Arthralgia [None]
  - White blood cell count increased [None]

NARRATIVE: CASE EVENT DATE: 20241210
